FAERS Safety Report 15646095 (Version 2)
Quarter: 2018Q4

REPORT INFORMATION
  Report Type: Report from Study
  Country: None (occurrence: US)
  Receive Date: 20181121
  Receipt Date: 20181129
  Transmission Date: 20190205
  Serious: Yes (Death)
  Sender: FDA-Public Use
  Company Number: US-ABBVIE-18K-163-2565068-00

PATIENT
  Sex: Male

DRUGS (5)
  1. VENCLEXTA [Suspect]
     Active Substance: VENETOCLAX
     Dosage: WEEK TWO
     Route: 048
     Dates: start: 201706, end: 201706
  2. VENCLEXTA [Suspect]
     Active Substance: VENETOCLAX
     Dosage: WEEK FOUR
     Route: 048
     Dates: start: 201707, end: 201707
  3. VENCLEXTA [Suspect]
     Active Substance: VENETOCLAX
     Dosage: WEEK THREE
     Route: 048
     Dates: start: 201706, end: 201706
  4. VENCLEXTA [Suspect]
     Active Substance: VENETOCLAX
     Indication: PLASMA CELL LEUKAEMIA
     Dosage: WEEK ONE
     Route: 048
     Dates: start: 20170601, end: 201706
  5. VENCLEXTA [Suspect]
     Active Substance: VENETOCLAX
     Route: 048
     Dates: start: 2017

REACTIONS (2)
  - Plasma cell leukaemia [Fatal]
  - Intentional product use issue [Unknown]
